FAERS Safety Report 19169668 (Version 2)
Quarter: 2022Q2

REPORT INFORMATION
  Report Type: Spontaneous
  Country: US (occurrence: US)
  Receive Date: 20210422
  Receipt Date: 20220420
  Transmission Date: 20220721
  Serious: No
  Sender: FDA-Public Use
  Company Number: US-ASTELLAS-2021US008997

PATIENT
  Age: 8 Decade
  Sex: Female

DRUGS (4)
  1. LEXISCAN [Suspect]
     Active Substance: REGADENOSON
     Indication: Scan myocardial perfusion
     Dosage: UNK UNK, UNKNOWN FREQ.
     Route: 065
     Dates: start: 2020, end: 2020
  2. LEXISCAN [Suspect]
     Active Substance: REGADENOSON
     Indication: Scan myocardial perfusion
     Dosage: UNK UNK, UNKNOWN FREQ.
     Route: 065
     Dates: start: 2020, end: 2020
  3. LEXISCAN [Suspect]
     Active Substance: REGADENOSON
     Indication: Scan myocardial perfusion
     Dosage: UNK UNK, UNKNOWN FREQ.
     Route: 065
     Dates: start: 2020, end: 2020
  4. LEXISCAN [Suspect]
     Active Substance: REGADENOSON
     Indication: Scan myocardial perfusion
     Dosage: UNK UNK, UNKNOWN FREQ.
     Route: 065
     Dates: start: 2020, end: 2020

REACTIONS (2)
  - Bone pain [Recovered/Resolved]
  - Incorrect product administration duration [Unknown]

NARRATIVE: CASE EVENT DATE: 20200101
